FAERS Safety Report 6436607-X (Version None)
Quarter: 2009Q4

REPORT INFORMATION
  Report Type: 
  Country: None (occurrence: None)
  Receive Date: 20091110
  Receipt Date: 20091110
  Transmission Date: 20100525
  Serious: Yes (Hospitalization)
  Sender: FDA-Public Use
  Company Number: None

PATIENT
  Sex: Female
  Weight: 65.5 kg

DRUGS (3)
  1. TEMOZOLOMIDE [Suspect]
     Dosage: 2000 MG
  2. THALIDOMIDE [Suspect]
     Dosage: 6000 MG
  3. ACCUTANE [Suspect]
     Dosage: 2100 MG

REACTIONS (3)
  - NEUTROPENIA [None]
  - PNEUMONIA STREPTOCOCCAL [None]
  - URINE OUTPUT DECREASED [None]
